FAERS Safety Report 12387434 (Version 2)
Quarter: 2016Q2

REPORT INFORMATION
  Report Type: Report from Study
  Country: US (occurrence: US)
  Receive Date: 20160519
  Receipt Date: 20160526
  Transmission Date: 20160815
  Serious: Yes (Other)
  Sender: FDA-Public Use
  Company Number: US-AMGEN-USASL2016061713

PATIENT
  Age: 82 Year
  Sex: Female

DRUGS (2)
  1. PROLIA [Suspect]
     Active Substance: DENOSUMAB
     Indication: OSTEOPOROSIS POSTMENOPAUSAL
     Dosage: UNK
     Route: 065
     Dates: start: 201512
  2. CALCIUM [Concomitant]
     Active Substance: CALCIUM

REACTIONS (11)
  - Paralysis [Unknown]
  - Dysphonia [Unknown]
  - Decreased appetite [Unknown]
  - Pain in jaw [Unknown]
  - Back pain [Recovering/Resolving]
  - Malaise [Recovering/Resolving]
  - Spinal pain [Recovering/Resolving]
  - Bone pain [Recovering/Resolving]
  - Jaw disorder [Unknown]
  - Feeling abnormal [Recovering/Resolving]
  - Arthralgia [Recovering/Resolving]

NARRATIVE: CASE EVENT DATE: 201511
